FAERS Safety Report 22333932 (Version 2)
Quarter: 2023Q2

REPORT INFORMATION
  Report Type: Report from Study
  Country: US (occurrence: US)
  Receive Date: 20230517
  Receipt Date: 20230608
  Transmission Date: 20230721
  Serious: Yes (Hospitalization, Other)
  Sender: FDA-Public Use
  Company Number: US-ALXN-A202214862AA

PATIENT
  Age: 62 Year
  Sex: Female

DRUGS (3)
  1. HYDROXYCHLOROQUINE DIPHOSPHATE [Suspect]
     Active Substance: HYDROXYCHLOROQUINE DIPHOSPHATE
     Indication: Rheumatoid arthritis
     Dosage: UNK
     Route: 065
  2. STRENSIQ [Suspect]
     Active Substance: ASFOTASE ALFA
     Indication: Hypophosphatasia
     Dosage: UNK
     Route: 065
  3. IRON [Concomitant]
     Active Substance: IRON
     Indication: Product used for unknown indication
     Dosage: UNK
     Route: 065

REACTIONS (26)
  - Spinal compression fracture [Unknown]
  - Fractured coccyx [Unknown]
  - Sciatica [Unknown]
  - Nerve compression [Unknown]
  - Thrombosis [Unknown]
  - Rheumatoid arthritis [Unknown]
  - Inflammation [Unknown]
  - Pain [Unknown]
  - Joint space narrowing [Unknown]
  - Fatigue [Unknown]
  - Peripheral swelling [Unknown]
  - Gait disturbance [Unknown]
  - Joint swelling [Unknown]
  - Skin laxity [Unknown]
  - Fall [Unknown]
  - Body height decreased [Unknown]
  - Dysstasia [Unknown]
  - Fracture pain [Unknown]
  - Back pain [Recovering/Resolving]
  - Arthralgia [Recovering/Resolving]
  - Blood pressure increased [Recovering/Resolving]
  - Somnolence [Unknown]
  - Fluid retention [Unknown]
  - Poor venous access [Unknown]
  - Vision blurred [Recovered/Resolved]
  - Nodule [Unknown]

NARRATIVE: CASE EVENT DATE: 20220401
